FAERS Safety Report 24888579 (Version 2)
Quarter: 2025Q1

REPORT INFORMATION
  Report Type: Report from Study
  Country: MX (occurrence: MX)
  Receive Date: 20250127
  Receipt Date: 20250206
  Transmission Date: 20250409
  Serious: Yes (Hospitalization, Other)
  Sender: TAKEDA
  Company Number: MX-TAKEDA-2024TUS048406

PATIENT
  Age: 23 Year
  Sex: Female

DRUGS (3)
  1. ICATIBANT [Suspect]
     Active Substance: ICATIBANT ACETATE
     Indication: Hereditary angioedema
  2. ICATIBANT [Suspect]
     Active Substance: ICATIBANT ACETATE
  3. ICATIBANT [Suspect]
     Active Substance: ICATIBANT ACETATE

REACTIONS (13)
  - Appendicitis [Recovering/Resolving]
  - Application site inflammation [Recovered/Resolved]
  - Hypoaesthesia oral [Recovered/Resolved]
  - Pallor [Recovered/Resolved]
  - Poor quality sleep [Unknown]
  - Malaise [Recovered/Resolved]
  - Head injury [Recovered/Resolved]
  - Limb injury [Unknown]
  - Stress [Unknown]
  - Leukocytosis [Unknown]
  - Discomfort [Not Recovered/Not Resolved]
  - Acne [Not Recovered/Not Resolved]
  - Nausea [Recovered/Resolved]

NARRATIVE: CASE EVENT DATE: 20240611
